FAERS Safety Report 5421221-5 (Version None)
Quarter: 2007Q3

REPORT INFORMATION
  Report Type: 
  Country: None (occurrence: None)
  Receive Date: 20070821
  Receipt Date: 20070813
  Transmission Date: 20080115
  Serious: Yes (Hospitalization)
  Sender: FDA-Public Use
  Company Number: US-ELI_LILLY_AND_COMPANY-US200705000963

PATIENT
  Sex: Male

DRUGS (4)
  1. HUMULIN 70/30 [Suspect]
     Indication: TYPE 2 DIABETES MELLITUS
     Dosage: 30 U, 2/D
     Dates: start: 19900101
  2. HUMULIN 70/30 [Suspect]
     Dosage: 35 U, EACH MORNING
  3. HUMULIN 70/30 [Suspect]
     Dosage: 30 U, EACH EVENING
  4. HUMULIN 70/30 [Suspect]
     Dosage: 35 U, 2/D

REACTIONS (7)
  - APPENDICITIS [None]
  - BLOOD GLUCOSE INCREASED [None]
  - CATARACT [None]
  - INFLUENZA [None]
  - NEUROPATHY [None]
  - NOCTURIA [None]
  - WEIGHT DECREASED [None]
